FAERS Safety Report 5413136-3 (Version None)
Quarter: 2007Q3

REPORT INFORMATION
  Report Type: 
  Country: None (occurrence: None)
  Receive Date: 20070810
  Receipt Date: 20070726
  Transmission Date: 20080115
  Serious: Yes (Hospitalization)
  Sender: FDA-Public Use
  Company Number: AZAUS200700287

PATIENT
  Age: 78 Year
  Sex: Female
  Weight: 63.6 kg

DRUGS (3)
  1. VIDAZA [Suspect]
     Indication: ACUTE MYELOID LEUKAEMIA
     Dosage: 75 MG/M2 (DAILY X 7 DAYS), SUBCUTANEOUS
     Route: 058
     Dates: start: 20070716, end: 20070722
  2. MGCD0103 [Suspect]
     Indication: ACUTE MYELOID LEUKAEMIA
     Dosage: 90 MG (3 X WEEKLY), ORAL
     Route: 048
     Dates: start: 20070720
  3. ATENOLOL [Concomitant]

REACTIONS (3)
  - CYSTITIS HAEMORRHAGIC [None]
  - THROMBOCYTOPENIA [None]
  - URINARY TRACT INFECTION [None]
